FAERS Safety Report 4442353-4 (Version None)
Quarter: 2004Q3

REPORT INFORMATION
  Report Type: 
  Country: None (occurrence: None)
  Receive Date: 20040903
  Receipt Date: 20040727
  Transmission Date: 20050211
  Serious: Yes (Hospitalization)
  Sender: FDA-Public Use
  Company Number: 2004UW14988

PATIENT
  Age: 57 Year
  Sex: Male
  Weight: 101.1521 kg

DRUGS (5)
  1. CRESTOR [Suspect]
     Indication: HYPERCHOLESTEROLAEMIA
     Dates: start: 20040401, end: 20040601
  2. PRINIVIL [Concomitant]
     Dates: end: 20040601
  3. TOPROL-XL [Concomitant]
  4. NIASPAN [Concomitant]
  5. ASPIRIN [Concomitant]

REACTIONS (1)
  - PANCREATITIS ACUTE [None]
